FAERS Safety Report 4735627-0 (Version None)
Quarter: 2005Q3

REPORT INFORMATION
  Report Type: 
  Country: None (occurrence: None)
  Receive Date: 20050805
  Receipt Date: 20050209
  Transmission Date: 20060218
  Serious: Yes (Hospitalization)
  Sender: FDA-Public Use
  Company Number: FR-GLAXOSMITHKLINE-B0371757A

PATIENT
  Age: 49 Year
  Sex: Male
  Weight: 53.5 kg

DRUGS (9)
  1. ABACAVIR [Suspect]
     Indication: HIV INFECTION
     Dosage: 300MG TWICE PER DAY
     Route: 048
     Dates: start: 20030728, end: 20050201
  2. EPIVIR [Suspect]
     Indication: HIV INFECTION
     Dosage: 150MG TWICE PER DAY
     Route: 048
     Dates: start: 19950101, end: 20050201
  3. LERCAN [Suspect]
     Dosage: 10MG PER DAY
     Route: 048
     Dates: start: 20040601, end: 20050208
  4. TRIFLUCAN [Suspect]
     Indication: DRY MOUTH
     Dosage: 1TSP PER DAY
     Route: 048
     Dates: start: 20050131, end: 20050202
  5. CRIXIVAN [Suspect]
     Indication: HIV INFECTION
     Dosage: 800MG THREE TIMES PER DAY
     Route: 048
     Dates: end: 20050201
  6. OCTOCOG ALFA [Concomitant]
     Indication: HAEMOPHILIA
     Route: 042
  7. ATAZANAVIR [Concomitant]
     Indication: HIV INFECTION
     Dosage: 150MG TWICE PER DAY
     Route: 048
     Dates: start: 20050314
  8. RITONAVIR [Concomitant]
     Indication: HIV INFECTION
     Dosage: 100MG TWICE PER DAY
     Route: 048
     Dates: start: 20050314
  9. TENOFOVIR [Concomitant]
     Indication: HIV INFECTION
     Route: 048
     Dates: start: 20050314

REACTIONS (10)
  - ALANINE AMINOTRANSFERASE INCREASED [None]
  - ANOREXIA [None]
  - ASPARTATE AMINOTRANSFERASE INCREASED [None]
  - ASTHENIA [None]
  - DIABETES MELLITUS [None]
  - DRY MOUTH [None]
  - GAMMA-GLUTAMYLTRANSFERASE INCREASED [None]
  - HEPATITIS [None]
  - HYPERGLYCAEMIA [None]
  - WEIGHT DECREASED [None]
